FAERS Safety Report 6982546-5 (Version None)
Quarter: 2010Q3

REPORT INFORMATION
  Report Type: 
  Country: None (occurrence: None)
  Receive Date: 20100914
  Receipt Date: 20100302
  Transmission Date: 20110219
  Serious: Yes (Other)
  Sender: FDA-Public Use
  Company Number: US-PFIZER INC-2010027054

PATIENT
  Sex: Male

DRUGS (3)
  1. LYRICA [Suspect]
     Indication: HERPES ZOSTER
     Dosage: 100 MG, 2X/DAY
     Route: 048
     Dates: start: 20100216, end: 20100218
  2. ACYCLOVIR [Concomitant]
     Indication: HERPES ZOSTER
     Dosage: 800 MG, 5X/DAY
     Route: 048
     Dates: start: 20100216
  3. VICODIN ES [Concomitant]
     Indication: HERPES ZOSTER
     Dosage: 7.5/750 MG, EVERY 4 TO 6 HOURS
     Route: 048
     Dates: start: 20100216

REACTIONS (2)
  - DIZZINESS [None]
  - VISION BLURRED [None]
